FAERS Safety Report 9200656 (Version 2)
Quarter: 2013Q2

REPORT INFORMATION
  Report Type: Spontaneous
  Country: US (occurrence: US)
  Receive Date: 20130331
  Receipt Date: 20130502
  Transmission Date: 20140414
  Serious: No
  Sender: FDA-Public Use
  Company Number: US-009507513-1303USA011001

PATIENT
  Sex: Male
  Weight: 76.19 kg

DRUGS (7)
  1. VICTRELIS [Suspect]
     Indication: HEPATITIS C
     Dosage: TAKE 4 TABLETS BY MOUTH EVERY 8 HOURS
     Route: 048
     Dates: start: 20130301
  2. PEG-INTRON [Suspect]
     Indication: HEPATITIS C
     Dosage: INJECT 150 MICROGRAM/0.5 ML AS DIRECTED WEEKLY
     Route: 058
     Dates: start: 201302
  3. REBETOL [Suspect]
     Indication: HEPATITIS C
     Dosage: UNK
     Route: 048
     Dates: start: 201302
  4. NEUPOGEN [Concomitant]
     Dosage: UNK
     Dates: start: 201303
  5. TYLENOL [Concomitant]
  6. ENSURE [Concomitant]
  7. PROCRIT [Concomitant]
     Dosage: 4000/ML

REACTIONS (7)
  - Abnormal dreams [Unknown]
  - Anger [Unknown]
  - Adverse event [Unknown]
  - Insomnia [Unknown]
  - White blood cell count decreased [Unknown]
  - Decreased appetite [Unknown]
  - Dizziness [Unknown]
